FAERS Safety Report 16206760 (Version 4)
Quarter: 2019Q2

REPORT INFORMATION
  Report Type: Report from Study
  Country: CA (occurrence: CA)
  Receive Date: 20190417
  Receipt Date: 20190606
  Transmission Date: 20190711
  Serious: Yes (Hospitalization, Other)
  Sender: FDA-Public Use
  Company Number: PHHY2019CA086350

PATIENT
  Age: 77 Year
  Sex: Male
  Weight: 79.5 kg

DRUGS (5)
  1. ENTRESTO [Suspect]
     Active Substance: SACUBITRIL\VALSARTAN
     Indication: CARDIAC FAILURE
     Dosage: 2 DF (SACUBITRIL 24 MG/ VALSARTAN 26 MG), UNK
     Route: 048
     Dates: start: 20170419, end: 20180717
  2. ENTRESTO [Suspect]
     Active Substance: SACUBITRIL\VALSARTAN
     Dosage: 2 DF (SACUBITRIL 49 MG/ VALSARTAN 51 MG), BID
     Route: 048
     Dates: start: 20180717, end: 20190215
  3. LIPITOR [Concomitant]
     Active Substance: ATORVASTATIN CALCIUM
     Indication: CARDIAC FAILURE
     Dosage: 20 MG, UNK
     Route: 048
  4. FUROSEMIDE. [Concomitant]
     Active Substance: FUROSEMIDE
     Indication: CARDIAC FAILURE
     Dosage: 40 MG, UNK
     Route: 048
     Dates: start: 20161010
  5. BISOPROLOL [Concomitant]
     Active Substance: BISOPROLOL
     Indication: CARDIAC FAILURE
     Dosage: 2.5 MG, UNK
     Route: 048

REACTIONS (25)
  - Contusion [Unknown]
  - Bundle branch block left [Recovering/Resolving]
  - Clavicle fracture [Recovering/Resolving]
  - Aortic valve incompetence [Unknown]
  - Blood sodium decreased [Unknown]
  - Syncope [Recovered/Resolved with Sequelae]
  - Oedema peripheral [Recovered/Resolved]
  - Tricuspid valve incompetence [Unknown]
  - Ventricular tachycardia [Unknown]
  - Right atrial dilatation [Unknown]
  - Hypotension [Unknown]
  - Haemorrhage [Unknown]
  - Coronary artery stenosis [Unknown]
  - Right ventricular enlargement [Unknown]
  - Pulmonary arterial pressure increased [Unknown]
  - Hypokinesia [Unknown]
  - Ventricular hypertrophy [Unknown]
  - Aortic valve thickening [Unknown]
  - Mitral valve incompetence [Unknown]
  - International normalised ratio increased [Unknown]
  - Left atrial dilatation [Unknown]
  - Carbon dioxide decreased [Unknown]
  - Skin abrasion [Unknown]
  - Dyspnoea [Recovered/Resolved]
  - Right ventricular systolic pressure decreased [Unknown]

NARRATIVE: CASE EVENT DATE: 20190215
